FAERS Safety Report 7290636-5 (Version None)
Quarter: 2011Q1

REPORT INFORMATION
  Report Type: 
  Country: None (occurrence: None)
  Receive Date: 20110214
  Receipt Date: 20110207
  Transmission Date: 20110831
  Serious: Yes (Other)
  Sender: FDA-Public Use
  Company Number: GB-JNJFOC-20110202340

PATIENT
  Sex: Male

DRUGS (2)
  1. TOPAMAX [Suspect]
     Indication: CONVULSION
     Route: 048
  2. PHENYTOIN [Concomitant]
     Indication: CONVULSION
     Route: 065

REACTIONS (1)
  - PRIAPISM [None]
